FAERS Safety Report 20001329 (Version 1)
Quarter: 2021Q4

REPORT INFORMATION
  Report Type: Spontaneous
  Country: US (occurrence: US)
  Receive Date: 20211027
  Receipt Date: 20211027
  Transmission Date: 20220303
  Serious: No
  Sender: FDA-Public Use
  Company Number: None

PATIENT
  Sex: Male

DRUGS (1)
  1. .DELTA.8-TETRAHYDROCANNABINOL\DEVICE\HERBALS [Suspect]
     Active Substance: .DELTA.8-TETRAHYDROCANNABINOL\DEVICE\HERBALS
     Indication: Product used for unknown indication
     Dates: start: 20211026, end: 20211026

REACTIONS (2)
  - Euphoric mood [None]
  - Wrong product administered [None]

NARRATIVE: CASE EVENT DATE: 20211026
